FAERS Safety Report 4865097-3 (Version None)
Quarter: 2005Q4

REPORT INFORMATION
  Report Type: 
  Country: None (occurrence: None)
  Receive Date: 20051221
  Receipt Date: 20051221
  Transmission Date: 20060501
  Serious: Yes (Hospitalization, Other)
  Sender: FDA-Public Use
  Company Number: None

PATIENT
  Sex: Male
  Weight: 85 kg

DRUGS (1)
  1. INTERFERON-ALPHA [Suspect]
     Dosage: SEE IMAGE
     Route: 058
     Dates: start: 20051107

REACTIONS (5)
  - ADHESION [None]
  - ASTHENIA [None]
  - DEHYDRATION [None]
  - FATIGUE [None]
  - SMALL INTESTINAL OBSTRUCTION [None]
